FAERS Safety Report 4730809-6 (Version None)
Quarter: 2005Q3

REPORT INFORMATION
  Report Type: 
  Country: None (occurrence: None)
  Receive Date: 20050719
  Receipt Date: 20041116
  Transmission Date: 20060218
  Serious: Yes (Other)
  Sender: FDA-Public Use
  Company Number: 207886

PATIENT
  Sex: Male

DRUGS (1)
  1. AVONEX [Suspect]
     Indication: MULTIPLE SCLEROSIS
     Dosage: UNKNOWN;UNK; IM
     Route: 030

REACTIONS (12)
  - AMNESIA [None]
  - BURNING SENSATION [None]
  - CONVULSION [None]
  - COORDINATION ABNORMAL [None]
  - DEPRESSION [None]
  - DYSARTHRIA [None]
  - HEADACHE [None]
  - MOBILITY DECREASED [None]
  - MUSCULOSKELETAL DISORDER [None]
  - NAUSEA [None]
  - NUCLEAR MAGNETIC RESONANCE IMAGING ABNORMAL [None]
  - SUICIDAL IDEATION [None]
